FAERS Safety Report 13203837 (Version 1)
Quarter: 2017Q1

REPORT INFORMATION
  Report Type: Spontaneous
  Country: US (occurrence: US)
  Receive Date: 20170209
  Receipt Date: 20170209
  Transmission Date: 20170428
  Serious: Yes (Other)
  Sender: FDA-Public Use
  Company Number: US-DRREDDYS-USA/USA/17/0087034

PATIENT
  Age: 69 Year
  Sex: Male

DRUGS (2)
  1. METRONIDAZOLE. [Suspect]
     Active Substance: METRONIDAZOLE
     Indication: CHOLECYSTITIS ACUTE
     Route: 065
  2. CIPROFLOXACIN. [Suspect]
     Active Substance: CIPROFLOXACIN
     Indication: CHOLECYSTITIS ACUTE
     Route: 065

REACTIONS (5)
  - Blood magnesium decreased [Unknown]
  - Nausea [Unknown]
  - Electrocardiogram QT prolonged [Unknown]
  - Blood potassium decreased [Unknown]
  - Ventricular tachycardia [Unknown]
